FAERS Safety Report 9755780 (Version 1)
Quarter: 2013Q4

REPORT INFORMATION
  Report Type: Spontaneous
  Country: US (occurrence: US)
  Receive Date: 20131213
  Receipt Date: 20131213
  Transmission Date: 20140711
  Serious: No
  Sender: FDA-Public Use
  Company Number: US-GLAXOSMITHKLINE-A1024107A

PATIENT
  Age: 53 Year
  Sex: Male

DRUGS (2)
  1. NICODERM CQ CLEAR 21MG [Suspect]
     Indication: EX-TOBACCO USER
     Dates: start: 2013
  2. UNSPECIFIED PAIN MEDICATION [Concomitant]

REACTIONS (5)
  - Drug ineffective [Unknown]
  - Drug administration error [Unknown]
  - Irritability [Unknown]
  - Mood altered [Unknown]
  - Tremor [Unknown]
